FAERS Safety Report 17614974 (Version 1)
Quarter: 2020Q2

REPORT INFORMATION
  Report Type: Spontaneous
  Country: NL (occurrence: NL)
  Receive Date: 20200402
  Receipt Date: 20200402
  Transmission Date: 20200713
  Serious: Yes (Other)
  Sender: FDA-Public Use
  Company Number: NL-ASTRAZENECA-2020SE42678

PATIENT
  Age: 73 Year
  Sex: Female
  Weight: 83 kg

DRUGS (7)
  1. LITHIUMCARBONAAT [Suspect]
     Active Substance: LITHIUM CARBONATE
     Indication: BIPOLAR II DISORDER
     Route: 065
     Dates: start: 20200309
  2. CHLOROQUINE. [Suspect]
     Active Substance: CHLOROQUINE
     Indication: CORONAVIRUS INFECTION
     Dosage: TABLET, 100 MG, 3 B.I.D., FIRST DOSE 6 TABLETS
     Route: 048
     Dates: start: 20200305, end: 20200309
  3. OXAZEPAM. [Concomitant]
     Active Substance: OXAZEPAM
     Dosage: 5.0MG UNKNOWN
     Route: 065
  4. CEFUROXIM [Concomitant]
     Active Substance: CEFUROXIME
     Dosage: 1.0DF UNKNOWN
  5. PARACETAMOL [Concomitant]
     Active Substance: ACETAMINOPHEN
     Dosage: 1.0DF UNKNOWN
     Route: 065
  6. QUETIAPINE. [Suspect]
     Active Substance: QUETIAPINE
     Indication: BIPOLAR II DISORDER
     Route: 048
     Dates: start: 2013
  7. DALTEPARINE [Concomitant]
     Dosage: 1 DF, INJECTION FLUID, 25.000 IU/ML (UNITS PER MILLILITER)
     Route: 065

REACTIONS (2)
  - Electrocardiogram QT prolonged [Not Recovered/Not Resolved]
  - Potentiating drug interaction [Not Recovered/Not Resolved]

NARRATIVE: CASE EVENT DATE: 20200310
